FAERS Safety Report 22850289 (Version 2)
Quarter: 2023Q4

REPORT INFORMATION
  Report Type: Spontaneous
  Country: US (occurrence: None)
  Receive Date: 20230822
  Receipt Date: 20231004
  Transmission Date: 20240110
  Serious: Yes (Other)
  Sender: FDA-Public Use
  Company Number: 2023A185842

PATIENT
  Sex: Male

DRUGS (2)
  1. IMJUDO [Suspect]
     Active Substance: TREMELIMUMAB\TREMELIMUMAB-ACTL
     Route: 042
  2. IMFINZI [Concomitant]
     Active Substance: DURVALUMAB

REACTIONS (3)
  - Hepatic neoplasm [Unknown]
  - Lung disorder [Unknown]
  - Pulmonary pain [Unknown]
